FAERS Safety Report 12350602 (Version 2)
Quarter: 2016Q2

REPORT INFORMATION
  Report Type: Spontaneous
  Country: US (occurrence: US)
  Receive Date: 20160510
  Receipt Date: 20160529
  Transmission Date: 20160815
  Serious: No
  Sender: FDA-Public Use
  Company Number: US-009507513-1604USA017215

PATIENT
  Age: 74 Year
  Sex: Female
  Weight: 48.98 kg

DRUGS (6)
  1. VITAMIN C [Concomitant]
     Active Substance: ASCORBIC ACID
  2. CALCIUM (UNSPECIFIED) [Concomitant]
     Active Substance: CALCIUM
  3. CATAPRES [Concomitant]
     Active Substance: CLONIDINE HYDROCHLORIDE
     Dosage: 0.1 MG AT HOURS
  4. SYNTHROID [Concomitant]
     Active Substance: LEVOTHYROXINE SODIUM
     Dosage: 25 MICROGRAM, QD
  5. VITAMINS (UNSPECIFIED) [Concomitant]
     Active Substance: VITAMINS
  6. BELSOMRA [Suspect]
     Active Substance: SUVOREXANT
     Indication: INSOMNIA
     Dosage: 1 PILL AT BEDTIME
     Route: 048
     Dates: start: 20150511, end: 20150513

REACTIONS (2)
  - Abnormal dreams [Not Recovered/Not Resolved]
  - Drug effect decreased [Not Recovered/Not Resolved]

NARRATIVE: CASE EVENT DATE: 20150511
